FAERS Safety Report 15530815 (Version 2)
Quarter: 2018Q4

REPORT INFORMATION
  Report Type: Spontaneous
  Country: US (occurrence: US)
  Receive Date: 20181018
  Receipt Date: 20181101
  Transmission Date: 20190205
  Serious: Yes (Hospitalization)
  Sender: FDA-Public Use
  Company Number: US-LEXICON PHARMACEUTICALS, INC-18-1606-01296

PATIENT
  Age: 80 Year
  Sex: Female
  Weight: 49.94 kg

DRUGS (18)
  1. LANREOTIDE [Concomitant]
     Active Substance: LANREOTIDE
  2. CARBINOXAMINE MALEATE. [Concomitant]
     Active Substance: CARBINOXAMINE MALEATE
  3. FAMOTIDINE. [Concomitant]
     Active Substance: FAMOTIDINE
  4. CHOLESTYRAMINE. [Concomitant]
     Active Substance: CHOLESTYRAMINE
  5. CALCIUM [Concomitant]
     Active Substance: CALCIUM
  6. TELOTRISTAT ETHYL [Suspect]
     Active Substance: TELOTRISTAT ETHYL
     Indication: CARCINOID SYNDROME
     Route: 048
     Dates: start: 20180105
  7. FUROSEMIDE. [Concomitant]
     Active Substance: FUROSEMIDE
  8. POTASSIUM [Concomitant]
     Active Substance: POTASSIUM
  9. MULTIVITAMIN [Concomitant]
     Active Substance: VITAMINS
  10. DILTIAZEM. [Concomitant]
     Active Substance: DILTIAZEM
  11. SALINE [Concomitant]
     Active Substance: SODIUM CHLORIDE
  12. VITAMIN D3 [Concomitant]
     Active Substance: CHOLECALCIFEROL
  13. PRO-BIOTIC [Concomitant]
  14. ZENPEP [Concomitant]
     Active Substance: PANCRELIPASE AMYLASE\PANCRELIPASE LIPASE\PANCRELIPASE PROTEASE
  15. FLUTICASONE PROPIONATE. [Concomitant]
     Active Substance: FLUTICASONE PROPIONATE
  16. DULOXETINE. [Concomitant]
     Active Substance: DULOXETINE
  17. VITAMIN B12 [Concomitant]
     Active Substance: CYANOCOBALAMIN
  18. VITAMIN B COMPLEX [Concomitant]
     Active Substance: CYANOCOBALAMIN\DEXPANTHENOL\NIACINAMIDE\PYRIDOXINE HYDROCHLORIDE\RIBOFLAVIN 5^-PHOSPHATE SODIUM\THIAMINE HYDROCHLORIDE\VITAMIN B COMPLEX

REACTIONS (3)
  - Fall [Unknown]
  - Syncope [Unknown]
  - Lower limb fracture [Unknown]

NARRATIVE: CASE EVENT DATE: 20180919
